FAERS Safety Report 8394485-6 (Version None)
Quarter: 2012Q2

REPORT INFORMATION
  Report Type: 
  Country: None (occurrence: None)
  Receive Date: 20120530
  Receipt Date: 20120525
  Transmission Date: 20120825
  Serious: Yes (Other)
  Sender: FDA-Public Use
  Company Number: PHHY2012BR045370

PATIENT
  Sex: Female
  Weight: 80 kg

DRUGS (1)
  1. DICLOFENAC SODIUM [Suspect]
     Indication: OSTEOARTHRITIS
     Dosage: 1 DF, BID
     Route: 048

REACTIONS (6)
  - BURSITIS [None]
  - PAIN IN EXTREMITY [None]
  - ABDOMINAL PAIN UPPER [None]
  - DRUG RESISTANCE [None]
  - ARTHRALGIA [None]
  - TENDONITIS [None]
